FAERS Safety Report 4646027-6 (Version None)
Quarter: 2005Q2

REPORT INFORMATION
  Report Type: 
  Country: None (occurrence: None)
  Receive Date: 20050422
  Receipt Date: 20050422
  Transmission Date: 20051028
  Serious: Yes (Hospitalization)
  Sender: FDA-Public Use
  Company Number: None

PATIENT
  Age: 66 Year
  Sex: Male
  Weight: 101.48 kg

DRUGS (1)
  1. AMIODARONE   200 MG [Suspect]
     Indication: ARRHYTHMIA
     Dosage: 200 MG  TID ORAL
     Route: 048
     Dates: start: 20000101, end: 20050128

REACTIONS (4)
  - ARRHYTHMIA [None]
  - ATRIAL FIBRILLATION [None]
  - DRUG TOXICITY [None]
  - HYPERTHYROIDISM [None]
